FAERS Safety Report 8297607-0 (Version None)
Quarter: 2012Q2

REPORT INFORMATION
  Report Type: 
  Country: None (occurrence: None)
  Receive Date: 20120419
  Receipt Date: 20120418
  Transmission Date: 20120825
  Serious: Yes (Other)
  Sender: FDA-Public Use
  Company Number: PHFR2011IE006628

PATIENT
  Sex: Male

DRUGS (4)
  1. CLOZARIL [Suspect]
     Indication: SCHIZOPHRENIA
     Dosage: 300 MG, (100 MG MANE AND 200 MG NOCTE)
     Route: 048
     Dates: start: 19990208
  2. PAROXETINE [Concomitant]
     Indication: SCHIZOPHRENIA
     Dosage: 10 MG, UNK
     Route: 048
  3. SULPIRIDE [Concomitant]
     Indication: SCHIZOPHRENIA
     Dosage: 200 MG, UNK
     Route: 048
  4. CLOZAPINE [Concomitant]
     Indication: SCHIZOPHRENIA
     Dosage: 225 MG, UNK
     Route: 048

REACTIONS (7)
  - POIKILOCYTOSIS [None]
  - MYELOFIBROSIS [None]
  - HAEMOGLOBIN DECREASED [None]
  - MEAN CELL VOLUME DECREASED [None]
  - PROSTATE CANCER [None]
  - HYPOCHROMASIA [None]
  - ANAEMIA [None]
